FAERS Safety Report 15856947 (Version 1)
Quarter: 2019Q1

REPORT INFORMATION
  Report Type: Spontaneous
  Country: FR (occurrence: FR)
  Receive Date: 20190123
  Receipt Date: 20190123
  Transmission Date: 20190417
  Serious: Yes (Hospitalization)
  Sender: FDA-Public Use
  Company Number: FR-SA-2019SA015123

PATIENT
  Age: 65 Year
  Sex: Female
  Weight: 62.5 kg

DRUGS (8)
  1. KARDEGIC [Suspect]
     Active Substance: ASPIRIN DL-LYSINE
     Indication: PROPHYLAXIS
     Dosage: UNK UNK, UNK
     Route: 048
     Dates: start: 20181203, end: 20181211
  2. PANTOPRAZOLE [Concomitant]
     Active Substance: PANTOPRAZOLE
     Indication: PRODUCT USED FOR UNKNOWN INDICATION
     Dosage: 20 MG, QD
     Route: 048
     Dates: start: 20181202
  3. LORAZEPAM. [Suspect]
     Active Substance: LORAZEPAM
     Indication: ANXIETY
     Dosage: 1 MG, QD
     Route: 048
     Dates: start: 20181205, end: 20181206
  4. ACUPAN [Suspect]
     Active Substance: NEFOPAM HYDROCHLORIDE
     Indication: PAIN
     Dosage: UNK, UNK
     Route: 048
     Dates: start: 20181202, end: 20181206
  5. XANAX [Concomitant]
     Active Substance: ALPRAZOLAM
     Indication: ANXIETY
     Dosage: 1 DF, QD
     Route: 048
     Dates: start: 20181202, end: 20181215
  6. ACTILYSE [Concomitant]
     Active Substance: ALTEPLASE
     Indication: CEREBROVASCULAR ACCIDENT
     Dosage: 56.25 MG, QD
     Route: 042
     Dates: start: 20181201, end: 20181203
  7. LOVENOX [Suspect]
     Active Substance: ENOXAPARIN SODIUM
     Indication: PROPHYLAXIS
     Dosage: 0.4 ML, QD
     Route: 058
     Dates: start: 20181203, end: 20181211
  8. NICARDIPINE [Suspect]
     Active Substance: NICARDIPINE
     Indication: PROPHYLAXIS
     Dosage: UNK UNK, UNK
     Route: 042
     Dates: start: 20181201, end: 20181206

REACTIONS (1)
  - Cholestasis [Recovered/Resolved]

NARRATIVE: CASE EVENT DATE: 20181206
